FAERS Safety Report 8548893-0 (Version None)
Quarter: 2012Q3

REPORT INFORMATION
  Report Type: 
  Country: None (occurrence: None)
  Receive Date: 20120730
  Receipt Date: 20120723
  Transmission Date: 20120928
  Serious: Yes (Hospitalization)
  Sender: FDA-Public Use
  Company Number: PHHY2012CA034681

PATIENT
  Sex: Male

DRUGS (2)
  1. EXELON [Suspect]
     Indication: DEMENTIA ALZHEIMER'S TYPE
     Dosage: 4.6 MG/ 24 HOURS (9MG/5 CM2/ 24 HRS)
     Route: 062
     Dates: start: 20120411
  2. RISPERIDONE [Concomitant]
     Dosage: 0.5 MG, BID

REACTIONS (8)
  - DYSSTASIA [None]
  - PNEUMONIA [None]
  - CONSTIPATION [None]
  - CRYING [None]
  - PNEUMONIA ASPIRATION [None]
  - AGITATION [None]
  - INSOMNIA [None]
  - APPLICATION SITE ERYTHEMA [None]
